FAERS Safety Report 24949742 (Version 1)
Quarter: 2025Q1

REPORT INFORMATION
  Report Type: Spontaneous
  Country: US (occurrence: US)
  Receive Date: 20250210
  Receipt Date: 20250210
  Transmission Date: 20250409
  Serious: No
  Sender: ROCHE
  Company Number: US-ROCHE-10000196671

PATIENT
  Sex: Female

DRUGS (16)
  1. ERIVEDGE [Suspect]
     Active Substance: VISMODEGIB
     Indication: Basal cell carcinoma
     Route: 048
  2. AMLODIPINE BESYLATE [Concomitant]
     Active Substance: AMLODIPINE BESYLATE
  3. ASPIRIN [Concomitant]
     Active Substance: ASPIRIN
  4. ATORVASTATIN [Concomitant]
     Active Substance: ATORVASTATIN
  5. CARBAMAZEPINE [Concomitant]
     Active Substance: CARBAMAZEPINE
  6. CARBAMAZEPINE [Concomitant]
     Active Substance: CARBAMAZEPINE
  7. FOLIC ACID\IRON [Concomitant]
     Active Substance: FOLIC ACID\IRON
  8. DONEPEZIL [Concomitant]
     Active Substance: DONEPEZIL
  9. KEPPRA [Concomitant]
     Active Substance: LEVETIRACETAM
  10. CARNITIN [Concomitant]
  11. LEVOTHYROXINE [Concomitant]
     Active Substance: LEVOTHYROXINE
  12. METOPROLOL [Concomitant]
     Active Substance: METOPROLOL
  13. NAMENDA XR [Concomitant]
     Active Substance: MEMANTINE HYDROCHLORIDE
  14. OMEPRAZOLE [Concomitant]
     Active Substance: OMEPRAZOLE
  15. RALOXIFENE [Concomitant]
     Active Substance: RALOXIFENE
  16. VITAMIN D3 [Concomitant]
     Active Substance: CHOLECALCIFEROL

REACTIONS (4)
  - Scratch [Unknown]
  - Bedridden [Unknown]
  - Fatigue [Unknown]
  - Haemorrhage [Unknown]
